FAERS Safety Report 12817847 (Version 1)
Quarter: 2016Q4

REPORT INFORMATION
  Report Type: Other
  Country: CA (occurrence: CA)
  Receive Date: 20161006
  Receipt Date: 20161006
  Transmission Date: 20170207
  Serious: Yes (Hospitalization)
  Sender: FDA-Public Use
  Company Number: CA-LUPIN PHARMACEUTICALS INC.-2016-03913

PATIENT
  Age: 57 Year
  Sex: Male

DRUGS (5)
  1. IMIPENEM [Interacting]
     Active Substance: IMIPENEM
     Indication: MYCOBACTERIUM ABSCESSUS INFECTION
     Route: 042
  2. CLARITHROMYCIN. [Suspect]
     Active Substance: CLARITHROMYCIN
     Indication: MYCOBACTERIUM ABSCESSUS INFECTION
     Route: 048
     Dates: start: 20140717
  3. WARFARIN [Interacting]
     Active Substance: WARFARIN
     Indication: ANTICOAGULANT THERAPY
     Route: 065
  4. CLARITHROMYCIN. [Interacting]
     Active Substance: CLARITHROMYCIN
     Route: 065
  5. AMIKACIN [Interacting]
     Active Substance: AMIKACIN
     Indication: MYCOBACTERIUM ABSCESSUS INFECTION
     Route: 042

REACTIONS (3)
  - Drug interaction [Unknown]
  - International normalised ratio increased [Unknown]
  - Gastrointestinal haemorrhage [Recovering/Resolving]

NARRATIVE: CASE EVENT DATE: 20140727
